FAERS Safety Report 16403571 (Version 1)
Quarter: 2019Q3

REPORT INFORMATION
  Report Type: Spontaneous
  Country: US (occurrence: US)
  Receive Date: 20190606
  Receipt Date: 20190606
  Transmission Date: 20191004
  Serious: Yes (Life-Threatening, Disabling)
  Sender: FDA-Public Use
  Company Number: None

PATIENT
  Age: 31 Year
  Sex: Male
  Weight: 72 kg

DRUGS (2)
  1. VALIUM [Suspect]
     Active Substance: DIAZEPAM
     Indication: ANXIETY
     Dates: start: 20120801, end: 20160510
  2. VALIUM [Suspect]
     Active Substance: DIAZEPAM
     Indication: WITHDRAWAL SYNDROME
     Dates: start: 20120801, end: 20160510

REACTIONS (5)
  - Catatonia [None]
  - Drug withdrawal syndrome [None]
  - Dysphagia [None]
  - Drug tolerance [None]
  - Fluid retention [None]

NARRATIVE: CASE EVENT DATE: 20120801
